FAERS Safety Report 23040479 (Version 1)
Quarter: 2023Q4

REPORT INFORMATION
  Report Type: Spontaneous
  Country: US (occurrence: None)
  Receive Date: 20231006
  Receipt Date: 20231006
  Transmission Date: 20240110
  Serious: Yes (Life-Threatening, Hospitalization)
  Sender: FDA-Public Use
  Company Number: None

PATIENT
  Age: 58 Year
  Sex: Female
  Weight: 60.75 kg

DRUGS (8)
  1. INDOMETHACIN [Suspect]
     Active Substance: INDOMETHACIN
     Indication: Cluster headache
     Dosage: OTHER QUANTITY : 1 CAPSULE(S);?FREQUENCY : 3 TIMES A DAY;?
     Route: 048
  2. BAYER LOW DOSE [Concomitant]
     Active Substance: ASPIRIN
  3. LISINOPRIL [Concomitant]
     Active Substance: LISINOPRIL
  4. HYDROCHLOROTHIAZIDE [Concomitant]
     Active Substance: HYDROCHLOROTHIAZIDE
  5. METOPROLOL [Concomitant]
     Active Substance: METOPROLOL
  6. VITAMIN D [Concomitant]
     Active Substance: VITAMIN D NOS
  7. VITAMIN B [Concomitant]
     Active Substance: VITAMIN B
  8. OMEGA 3 [Concomitant]
     Active Substance: CAPSAICIN

REACTIONS (2)
  - Aortic aneurysm [None]
  - Sepsis [None]

NARRATIVE: CASE EVENT DATE: 20170906
